FAERS Safety Report 8299083-0 (Version None)
Quarter: 2012Q2

REPORT INFORMATION
  Report Type: 
  Country: None (occurrence: None)
  Receive Date: 20120419
  Receipt Date: 20120410
  Transmission Date: 20120825
  Serious: Yes (Hospitalization, Other)
  Sender: FDA-Public Use
  Company Number: FR-ASTRAZENECA-2012SE24375

PATIENT
  Age: 27363 Day
  Sex: Male

DRUGS (13)
  1. GENTAMICIN [Concomitant]
     Route: 048
     Dates: start: 20120121, end: 20120126
  2. NEXIUM [Suspect]
     Route: 048
  3. ASPIRIN [Concomitant]
     Route: 048
  4. ACEBUTOLOL [Concomitant]
     Route: 048
  5. DOXYCYCLINE [Suspect]
     Indication: Q FEVER
     Route: 048
     Dates: start: 20120121
  6. AMLODIPINE BESYLATE [Concomitant]
     Route: 048
  7. PERINDOPRIL ERBUMINE [Concomitant]
     Route: 048
  8. PLAVIX [Concomitant]
     Route: 048
  9. NITROGLYCERIN [Concomitant]
     Route: 062
  10. NICORANDIL [Concomitant]
     Route: 048
  11. ROCEPHIN [Concomitant]
     Route: 048
     Dates: start: 20120110, end: 20120126
  12. PROCORALAN [Concomitant]
     Route: 048
  13. NICOTAMIDE [Concomitant]
     Route: 048

REACTIONS (9)
  - Q FEVER [None]
  - RENAL FAILURE ACUTE [None]
  - PANCYTOPENIA [None]
  - AGRANULOCYTOSIS [None]
  - URINARY TRACT INFECTION ENTEROCOCCAL [None]
  - HISTIOCYTOSIS HAEMATOPHAGIC [None]
  - PROSTATITIS ESCHERICHIA COLI [None]
  - CYTOLYTIC HEPATITIS [None]
  - CHOLESTASIS [None]
